FAERS Safety Report 7849611-1 (Version None)
Quarter: 2011Q4

REPORT INFORMATION
  Report Type: 
  Country: None (occurrence: None)
  Receive Date: 20111024
  Receipt Date: 20111019
  Transmission Date: 20120403
  Serious: Yes (Other)
  Sender: FDA-Public Use
  Company Number: AUR-APL-2011-0 021635

PATIENT
  Sex: Female

DRUGS (2)
  1. TERBUTALINE SULFATE [Concomitant]
  2. CETIRIZINE [Suspect]
     Indication: HYPERSENSITIVITY
     Dosage: 10 MG, 1 IN 1 D, ORAL
     Route: 048
     Dates: start: 20061116, end: 20110620

REACTIONS (2)
  - COMPLEX PARTIAL SEIZURES [None]
  - EPILEPSY [None]
